FAERS Safety Report 10761444 (Version 4)
Quarter: 2015Q2

REPORT INFORMATION
  Report Type: Spontaneous
  Country: IT (occurrence: IT)
  Receive Date: 20150204
  Receipt Date: 20150429
  Transmission Date: 20150821
  Serious: Yes (Death, Life-Threatening, Hospitalization, Other)
  Sender: FDA-Public Use
  Company Number: IT-ELI_LILLY_AND_COMPANY-IT201501010535

PATIENT
  Age: 67 Year
  Sex: Female
  Weight: 55 kg

DRUGS (3)
  1. ALIMTA [Suspect]
     Active Substance: PEMETREXED DISODIUM
     Indication: LUNG ADENOCARCINOMA STAGE IV
     Dosage: 500 MG/M2 (TOTAL DOSE 620MG), CYCLICAL EVERY 21 DAYS
     Route: 042
     Dates: start: 20140625, end: 20150119
  2. PALEXIA [Concomitant]
     Active Substance: TAPENTADOL HYDROCHLORIDE
     Indication: PAIN
     Dosage: 200 MG, UNKNOWN
     Route: 048
     Dates: start: 20140501, end: 20150126
  3. FOLINGRAV [Concomitant]
     Indication: SUPPLEMENTATION THERAPY
     Dosage: 1 DF, QD
     Route: 065
     Dates: start: 20140616, end: 20150126

REACTIONS (10)
  - Pancytopenia [Fatal]
  - Renal failure [Fatal]
  - Somnolence [Unknown]
  - Shock [Unknown]
  - Cardiac arrest [Fatal]
  - Abdominal pain [Unknown]
  - Pulmonary oedema [Fatal]
  - Pyrexia [Fatal]
  - Atrial fibrillation [Unknown]
  - Dehydration [Unknown]

NARRATIVE: CASE EVENT DATE: 20150126
